FAERS Safety Report 10845810 (Version 1)
Quarter: 2015Q1

REPORT INFORMATION
  Report Type: Spontaneous
  Country: US (occurrence: US)
  Receive Date: 20150220
  Receipt Date: 20150220
  Transmission Date: 20150721
  Serious: No
  Sender: FDA-Public Use
  Company Number: US-ABBVIE-14P-163-1314191-00

PATIENT

DRUGS (2)
  1. HUMIRA [Suspect]
     Active Substance: ADALIMUMAB
     Indication: HIDRADENITIS
     Route: 065
     Dates: start: 2010
  2. BOIL EASE [Concomitant]
     Active Substance: BENZOCAINE
     Indication: PAIN
     Route: 065

REACTIONS (3)
  - Scar [Not Recovered/Not Resolved]
  - Rash [Unknown]
  - Injection site pain [Unknown]
